FAERS Safety Report 12649030 (Version 3)
Quarter: 2016Q3

REPORT INFORMATION
  Report Type: Report from Study
  Country: AU (occurrence: AU)
  Receive Date: 20160812
  Receipt Date: 20160909
  Transmission Date: 20161109
  Serious: Yes (Hospitalization, Disabling)
  Sender: FDA-Public Use
  Company Number: PHHO2015AU008833

PATIENT
  Age: 52 Year
  Sex: Female
  Weight: 59.6 kg

DRUGS (4)
  1. LDE 225 [Suspect]
     Active Substance: ERISMODEGIB
     Dosage: DOSE BLINDED
     Route: 048
     Dates: start: 20150518
  2. PREDNISOLONE. [Suspect]
     Active Substance: PREDNISOLONE
     Indication: RENAL TRANSPLANT
     Dosage: 5 MG, OO
     Route: 048
     Dates: start: 1981
  3. LDE 225 [Suspect]
     Active Substance: ERISMODEGIB
     Indication: BASAL CELL CARCINOMA
     Dosage: DOSE BLINDED
     Route: 048
     Dates: start: 20120628, end: 20150514
  4. SIROLIMUS. [Suspect]
     Active Substance: SIROLIMUS
     Indication: RENAL TRANSPLANT
     Dosage: 1 MG, OO
     Route: 048
     Dates: start: 1981

REACTIONS (5)
  - Dyspnoea [Not Recovered/Not Resolved]
  - Lower respiratory tract infection [Recovered/Resolved]
  - Pleural effusion [Recovered/Resolved]
  - Pneumonia [Recovered/Resolved]
  - Pneumonia [Recovered/Resolved]

NARRATIVE: CASE EVENT DATE: 20150514
